FAERS Safety Report 18135823 (Version 1)
Quarter: 2020Q3

REPORT INFORMATION
  Report Type: Spontaneous
  Country: SE (occurrence: SE)
  Receive Date: 20200811
  Receipt Date: 20200811
  Transmission Date: 20201103
  Serious: Yes (Life-Threatening)
  Sender: FDA-Public Use
  Company Number: SE-MYLANLABS-2020M1069515

PATIENT
  Age: 43 Year
  Sex: Male

DRUGS (7)
  1. LOPERAMID [Concomitant]
     Active Substance: LOPERAMIDE
     Dosage: VB
     Dates: start: 20200429
  2. CAPECITABINE SANDOZ [Suspect]
     Active Substance: CAPECITABINE
     Indication: PRODUCT USED FOR UNKNOWN INDICATION
     Dosage: 4+4 UNDER 14 DAGAR
     Route: 048
     Dates: start: 20200604, end: 20200710
  3. OXALIPLATIN. [Suspect]
     Active Substance: OXALIPLATIN
     Dosage: 280 MILLIGRAM, QD
     Route: 042
     Dates: start: 20200626, end: 20200626
  4. ONDANSETRON [Concomitant]
     Active Substance: ONDANSETRON
     Dosage: UNK
     Dates: start: 20200515
  5. OXALIPLATIN. [Suspect]
     Active Substance: OXALIPLATIN
     Indication: PRODUCT USED FOR UNKNOWN INDICATION
     Dosage: 280 MILLIGRAM, QD
     Route: 042
     Dates: start: 20200604, end: 20200604
  6. BETAPRED [Concomitant]
     Active Substance: BETAMETHASONE SODIUM PHOSPHATE
     Dosage: UNK
     Dates: start: 20200515
  7. URSOFALK [Concomitant]
     Active Substance: URSODIOL
     Dosage: UNK
     Dates: start: 20190801

REACTIONS (1)
  - Ventricular fibrillation [Recovered/Resolved]

NARRATIVE: CASE EVENT DATE: 20200711
